FAERS Safety Report 4299500-7 (Version None)
Quarter: 2004Q1

REPORT INFORMATION
  Report Type: 
  Country: None (occurrence: None)
  Receive Date: 20040217
  Receipt Date: 20040202
  Transmission Date: 20041129
  Serious: Yes (Hospitalization)
  Sender: FDA-Public Use
  Company Number: 2004004687

PATIENT
  Age: 66 Year
  Sex: Male

DRUGS (11)
  1. ATARAX [Suspect]
     Indication: ANXIETY
     Dosage: 25 MG (DAILY), INTRAVENOUS
     Route: 042
     Dates: start: 20020516, end: 20020516
  2. CEFAZOLIN SODIUM [Suspect]
     Indication: INFECTION PROPHYLAXIS
     Dosage: 1 GRAM, INTRAVENOUS
     Route: 042
     Dates: start: 20020515, end: 20020516
  3. PHENOBARBITAL TAB [Suspect]
     Indication: INSOMNIA
     Dosage: 100 MG (DAILY), INTRAVENOUS
     Route: 042
     Dates: start: 20020516, end: 20020516
  4. GLYBURIDE [Suspect]
     Indication: DIABETES MELLITUS
     Dosage: 2.5 MG (BID), ORAL
     Route: 048
     Dates: start: 20020515, end: 20020524
  5. DIAZEPAM (DIAZPEM) [Suspect]
     Indication: ANXIETY
     Dosage: 2 MG (BID), ORAL
     Route: 048
     Dates: start: 20020515, end: 20020524
  6. ALLOPURINOL [Suspect]
     Indication: GOUT
     Dosage: 100 MG (DAILY), ORAL
     Route: 048
     Dates: start: 20020515, end: 20020524
  7. METOCLOPRAMIDE [Concomitant]
  8. NIFEDIPINE [Concomitant]
  9. EPALRESTAT [Concomitant]
  10. MANIDIPINE HYDROCHLORIDE [Concomitant]
  11. MIANSERIN HYDROCHLORIDE [Concomitant]

REACTIONS (9)
  - BALANOPOSTHITIS [None]
  - ERYTHEMA [None]
  - EXCORIATION [None]
  - MALAISE [None]
  - OCULOMUCOCUTANEOUS SYNDROME [None]
  - ORAL MUCOSAL BLISTERING [None]
  - PENIS DISORDER [None]
  - PYREXIA [None]
  - RASH GENERALISED [None]
